FAERS Safety Report 21094901 (Version 2)
Quarter: 2022Q3

REPORT INFORMATION
  Report Type: Spontaneous
  Country: GB (occurrence: GB)
  Receive Date: 20220718
  Receipt Date: 20220915
  Transmission Date: 20221027
  Serious: Yes (Other)
  Sender: FDA-Public Use
  Company Number: None

PATIENT
  Age: 62 Year
  Sex: Female
  Weight: 66 kg

DRUGS (4)
  1. PAXLOVID [Suspect]
     Active Substance: NIRMATRELVIR\RITONAVIR
     Indication: Coronavirus infection
     Dosage: 20 MG
     Dates: start: 20220308, end: 20220313
  2. CANNABIDIOL [Concomitant]
     Active Substance: CANNABIDIOL
     Indication: Multiple sclerosis
     Dosage: UNK
  3. OCREVUS [Concomitant]
     Active Substance: OCRELIZUMAB
     Indication: Multiple sclerosis
     Dosage: UNK
  4. BUPRENORPHINE [Concomitant]
     Active Substance: BUPRENORPHINE
     Indication: Restless legs syndrome
     Dosage: UNK

REACTIONS (24)
  - COVID-19 [Recovered/Resolved with Sequelae]
  - Disease recurrence [Recovered/Resolved with Sequelae]
  - Pathogen resistance [Unknown]
  - Sleep disorder [Unknown]
  - Nasal congestion [Not Recovered/Not Resolved]
  - Cough [Unknown]
  - Chills [Unknown]
  - Hyperhidrosis [Unknown]
  - Oropharyngeal pain [Unknown]
  - Secretion discharge [Unknown]
  - Rhinorrhoea [Unknown]
  - Nasal discharge discolouration [Unknown]
  - Respiratory disorder [Unknown]
  - Sjogren^s syndrome [Unknown]
  - Dysphagia [Unknown]
  - Restless legs syndrome [Unknown]
  - Condition aggravated [Unknown]
  - Decreased appetite [Unknown]
  - Taste disorder [Unknown]
  - Parosmia [Unknown]
  - Respiratory tract infection [Unknown]
  - Illness [Unknown]
  - Fatigue [Not Recovered/Not Resolved]
  - Post-acute COVID-19 syndrome [Unknown]

NARRATIVE: CASE EVENT DATE: 20220321
